FAERS Safety Report 8009033-X (Version None)
Quarter: 2011Q4

REPORT INFORMATION
  Report Type: 
  Country: None (occurrence: None)
  Receive Date: 20111227
  Receipt Date: 20111222
  Transmission Date: 20120403
  Serious: Yes (Death)
  Sender: FDA-Public Use
  Company Number: US-CELGENEUS-163-21880-11122998

PATIENT
  Sex: Male

DRUGS (14)
  1. MULTI-VITAMINS [Concomitant]
     Route: 065
  2. VICODIN [Concomitant]
     Route: 065
  3. ALBUTEROL [Concomitant]
     Route: 065
  4. PROAIR HFA [Concomitant]
     Route: 065
  5. ADVAIR DISKUS 100/50 [Concomitant]
     Route: 065
  6. BACTRIM [Concomitant]
     Route: 065
  7. IRON [Concomitant]
     Route: 065
  8. ACETAMINOPHEN [Concomitant]
     Route: 065
  9. ATIVAN [Concomitant]
     Route: 065
  10. COLACE [Concomitant]
     Route: 065
  11. PREDNISONE TAB [Concomitant]
     Route: 065
  12. REVLIMID [Suspect]
     Indication: MULTIPLE MYELOMA
     Dosage: 5 MILLIGRAM
     Route: 048
     Dates: start: 20111123
  13. COUMADIN [Concomitant]
     Route: 065
  14. PAXIL [Concomitant]
     Route: 065

REACTIONS (1)
  - DEATH [None]
